FAERS Safety Report 19352801 (Version 4)
Quarter: 2021Q4

REPORT INFORMATION
  Report Type: Spontaneous
  Country: JP (occurrence: JP)
  Receive Date: 20210601
  Receipt Date: 20211121
  Transmission Date: 20220303
  Serious: Yes (Death, Life-Threatening, Hospitalization, Other)
  Sender: FDA-Public Use
  Company Number: JP-MSD-M2021-13048

PATIENT
  Age: 68 Year
  Sex: Male

DRUGS (3)
  1. KEYTRUDA [Suspect]
     Active Substance: PEMBROLIZUMAB
     Indication: Non-small cell lung cancer stage IV
     Dosage: 200 MILLIGRAM, Q3W
     Route: 041
     Dates: start: 20210107, end: 20210107
  2. CARBOPLATIN [Suspect]
     Active Substance: CARBOPLATIN
     Indication: Non-small cell lung cancer stage IV
     Dosage: 650 MILLIGRAM, Q3W
     Route: 041
     Dates: start: 20210107, end: 20210107
  3. PACLITAXEL [Suspect]
     Active Substance: PACLITAXEL
     Indication: Non-small cell lung cancer stage IV
     Dosage: 300 MILLIGRAM, Q3W
     Route: 041
     Dates: start: 20210107, end: 20210107

REACTIONS (6)
  - Immune-mediated hepatic disorder [Fatal]
  - Interstitial lung disease [Fatal]
  - Biliary dilatation [Unknown]
  - Malignant neoplasm progression [Unknown]
  - Cholelithiasis [Unknown]
  - Hyperplastic cholecystopathy [Unknown]

NARRATIVE: CASE EVENT DATE: 20210118
